FAERS Safety Report 4390785-5 (Version None)
Quarter: 2004Q3

REPORT INFORMATION
  Report Type: 
  Country: None (occurrence: None)
  Receive Date: 20040706
  Receipt Date: 20040706
  Transmission Date: 20050211
  Serious: Yes (Death)
  Sender: FDA-Public Use
  Company Number: None

PATIENT
  Age: 37 Year
  Sex: Female

DRUGS (11)
  1. TAXOL [Suspect]
     Indication: BREAST CANCER STAGE II
     Dosage: 334 MG ONCE INTRAVENOUS
     Route: 042
     Dates: start: 20040701, end: 20040701
  2. DECADRON [Concomitant]
  3. BENADRYL [Concomitant]
  4. ANZEMET [Concomitant]
  5. ATIVAN [Concomitant]
  6. ZANTAC [Concomitant]
  7. PROTONIX [Concomitant]
  8. ALLEGRA [Concomitant]
  9. FLONASE [Concomitant]
  10. PATANOL [Concomitant]
  11. ADVAIR DISKUS 100/50 [Concomitant]

REACTIONS (8)
  - ABDOMINAL DISCOMFORT [None]
  - AGITATION [None]
  - ANAPHYLACTIC REACTION [None]
  - CARDIAC ARREST [None]
  - CYANOSIS [None]
  - DYSPNOEA [None]
  - RESPIRATORY FAILURE [None]
  - RESTLESSNESS [None]
